FAERS Safety Report 11447022 (Version 1)
Quarter: 2015Q3

REPORT INFORMATION
  Report Type: Spontaneous
  Country: US (occurrence: US)
  Receive Date: 20150831
  Receipt Date: 20150831
  Transmission Date: 20151125
  Serious: Yes (Life-Threatening, Hospitalization, Other)
  Sender: FDA-Public Use
  Company Number: US-ELI_LILLY_AND_COMPANY-US200812001910

PATIENT
  Age: 60 Year
  Sex: Male
  Weight: 74.83 kg

DRUGS (14)
  1. NOVOLOG [Concomitant]
     Active Substance: INSULIN ASPART
     Dosage: 4 U, EACH MORNING
     Route: 058
  2. LIPITOR [Concomitant]
     Active Substance: ATORVASTATIN CALCIUM
     Dosage: 20 MG, EACH EVENING
     Route: 048
  3. AMBIEN [Concomitant]
     Active Substance: ZOLPIDEM TARTRATE
     Dosage: 10 MG, EACH EVENING
     Route: 048
  4. REGLAN [Concomitant]
     Active Substance: METOCLOPRAMIDE HYDROCHLORIDE
     Dosage: 1 D/F, AS NEEDED
     Route: 048
  5. NOVOLOG [Concomitant]
     Active Substance: INSULIN ASPART
     Dosage: 5 U, OTHER
  6. CYMBALTA [Suspect]
     Active Substance: DULOXETINE HYDROCHLORIDE
     Dosage: 30 MG, DAILY (1/D)
     Route: 048
     Dates: start: 20081016, end: 20081121
  7. NOVOLOG [Concomitant]
     Active Substance: INSULIN ASPART
     Dosage: 7 U, EACH EVENING
     Route: 058
  8. ASPIRIN. [Concomitant]
     Active Substance: ASPIRIN
     Dosage: 1 D/F, DAILY (1/D)
     Route: 048
  9. LANTUS [Concomitant]
     Active Substance: INSULIN GLARGINE
     Dosage: 13 U, EACH EVENING
     Route: 058
  10. DIAZEPAM. [Concomitant]
     Active Substance: DIAZEPAM
     Dosage: 5 MG, AS NEEDED
     Route: 048
  11. CYMBALTA [Suspect]
     Active Substance: DULOXETINE HYDROCHLORIDE
     Indication: DEPRESSION
     Dosage: 60 MG, DAILY (1/D)
     Route: 048
     Dates: start: 20041112, end: 20081016
  12. VITAMINS [Concomitant]
     Active Substance: VITAMINS
  13. FISH OIL [Concomitant]
     Active Substance: FISH OIL
     Dosage: 1 D/F, DAILY (1/D)
     Route: 048
  14. NIASPAN [Concomitant]
     Active Substance: NIACIN
     Dosage: 1 D/F, AS NEEDED
     Route: 048

REACTIONS (2)
  - Rectal haemorrhage [Unknown]
  - Gastric haemorrhage [Not Recovered/Not Resolved]

NARRATIVE: CASE EVENT DATE: 200808
